FAERS Safety Report 9554560 (Version 2)
Quarter: 2013Q3

REPORT INFORMATION
  Report Type: Spontaneous
  Country: US (occurrence: US)
  Receive Date: 20130925
  Receipt Date: 20130925
  Transmission Date: 20140515
  Serious: Yes (Other)
  Sender: FDA-Public Use
  Company Number: US-TAKEDA-2013TUS000136

PATIENT
  Sex: 0

DRUGS (1)
  1. PREVACID [Suspect]

REACTIONS (4)
  - Balance disorder [Unknown]
  - Skull fracture [Unknown]
  - Malaise [Unknown]
  - Fatigue [Unknown]
